FAERS Safety Report 19213213 (Version 1)
Quarter: 2021Q2

REPORT INFORMATION
  Report Type: Spontaneous
  Country: US (occurrence: US)
  Receive Date: 20210504
  Receipt Date: 20210504
  Transmission Date: 20210717
  Serious: No
  Sender: FDA-Public Use
  Company Number: US-JNJFOC-20210442530

PATIENT
  Sex: Male

DRUGS (1)
  1. MENS ROGAINE EXTRA STRENGTH [Suspect]
     Active Substance: MINOXIDIL
     Indication: ALOPECIA
     Dosage: PRODUCT START DATE: MORE THAN 3 YEARS AGO?PRODUCT LAST ADMINISTERED: 21?APR?2021
     Route: 061

REACTIONS (1)
  - Therapeutic product effect incomplete [Unknown]
